FAERS Safety Report 18753907 (Version 4)
Quarter: 2023Q2

REPORT INFORMATION
  Report Type: Other
  Country: CA (occurrence: CA)
  Receive Date: 20210119
  Receipt Date: 20230613
  Transmission Date: 20230721
  Serious: Yes (Other)
  Sender: FDA-Public Use
  Company Number: CA-CELLTRION INC.-2020CA028663

PATIENT

DRUGS (8)
  1. RITUXIMAB [Suspect]
     Active Substance: RITUXIMAB
     Indication: Rheumatoid arthritis
     Dosage: 1000 MG
     Route: 042
  2. METOPROLOL [Suspect]
     Active Substance: METOPROLOL
     Indication: Tachycardia
     Dosage: UNK
     Route: 065
  3. BENADRYL [Concomitant]
     Active Substance: DIPHENHYDRAMINE HYDROCHLORIDE
     Indication: Premedication
     Dosage: 50 MG
     Route: 048
  4. CALCIUM [Concomitant]
     Active Substance: CALCIUM
     Indication: Product used for unknown indication
  5. DESOXIMETASONE [Concomitant]
     Active Substance: DESOXIMETASONE
     Indication: Product used for unknown indication
  6. METHYLPREDNISOLONE [Concomitant]
     Active Substance: METHYLPREDNISOLONE
     Indication: Premedication
     Dosage: 100 MG
     Route: 042
  7. TYLENOL [Concomitant]
     Active Substance: ACETAMINOPHEN
     Indication: Premedication
     Dosage: 650 MG
     Route: 048
  8. LOSEC [Concomitant]
     Active Substance: OMEPRAZOLE
     Indication: Product used for unknown indication

REACTIONS (11)
  - Blood pressure diastolic decreased [Recovered/Resolved]
  - Blood pressure systolic abnormal [Recovered/Resolved]
  - Extrasystoles [Recovered/Resolved]
  - Paraesthesia oral [Recovered/Resolved]
  - Malaise [Recovered/Resolved]
  - Asthenia [Recovered/Resolved]
  - Infusion related reaction [Recovered/Resolved]
  - Tachycardia [Recovered/Resolved]
  - Blood pressure fluctuation [Recovered/Resolved]
  - Dyspnoea [Recovered/Resolved]
  - Heart rate increased [Recovered/Resolved]
